FAERS Safety Report 5041899-8 (Version None)
Quarter: 2006Q2

REPORT INFORMATION
  Report Type: 
  Country: None (occurrence: None)
  Receive Date: 20060627
  Receipt Date: 20060609
  Transmission Date: 20061013
  Serious: Yes (Hospitalization)
  Sender: FDA-Public Use
  Company Number: US200606002421

PATIENT
  Age: 64 Year
  Sex: Male

DRUGS (4)
  1. ALIMTA [Suspect]
     Indication: NON-SMALL CELL LUNG CANCER
     Dosage: 500 MG/M2, INTRAVENOUS
     Route: 042
     Dates: start: 20060501
  2. FOLIC ACID [Concomitant]
  3. CYANOCOBALAMIN [Concomitant]
  4. DEXAMETHASONE [Concomitant]

REACTIONS (1)
  - HAEMOLYTIC ANAEMIA [None]
